FAERS Safety Report 7375434-6 (Version None)
Quarter: 2011Q1

REPORT INFORMATION
  Report Type: 
  Country: None (occurrence: None)
  Receive Date: 20110325
  Receipt Date: 20110314
  Transmission Date: 20110831
  Serious: Yes (Hospitalization, Other)
  Sender: FDA-Public Use
  Company Number: PHHY2011FR21561

PATIENT
  Sex: Female

DRUGS (8)
  1. PLAQUENIL [Concomitant]
  2. BISOPROLOL FUMARATE [Concomitant]
  3. NOOTROPYL [Concomitant]
  4. ALPRAZOLAM [Concomitant]
     Dosage: UNK
     Dates: start: 20110121
  5. RASILEZ HCT [Suspect]
     Dosage: 1 DF, QD
     Route: 048
     Dates: start: 20101207, end: 20110208
  6. ESCITALOPRAM [Suspect]
     Dosage: 1 DF, QD
     Dates: start: 20100204, end: 20110208
  7. ALDACTAZINE [Suspect]
     Dosage: 1 DF, QD
     Dates: start: 20100204, end: 20110208
  8. LEVOTHYROX [Concomitant]

REACTIONS (9)
  - ASTHENIA [None]
  - BLOOD OSMOLARITY DECREASED [None]
  - CEREBROVASCULAR ACCIDENT [None]
  - DIZZINESS [None]
  - GASTROENTERITIS [None]
  - HEMIPARESIS [None]
  - FEELING ABNORMAL [None]
  - FALL [None]
  - HYPONATRAEMIA [None]
